FAERS Safety Report 17267618 (Version 1)
Quarter: 2020Q1

REPORT INFORMATION
  Report Type: Spontaneous
  Country: US (occurrence: US)
  Receive Date: 20191220
  Receipt Date: 20191220
  Transmission Date: 20200409
  Serious: No
  Sender: FDA-Public Use
  Company Number: None

PATIENT
  Age: 50 Year
  Sex: Male
  Weight: 68.04 kg

DRUGS (1)
  1. BUPRENORPHINE/NALOXONE 8M/2MG [Suspect]
     Active Substance: BUPRENORPHINE HYDROCHLORIDE\NALOXONE HYDROCHLORIDE
     Indication: DRUG DEPENDENCE
     Route: 060
     Dates: start: 20191101, end: 20191114

REACTIONS (4)
  - Stomatitis [None]
  - Rash [None]
  - Erythema [None]
  - Nonspecific reaction [None]

NARRATIVE: CASE EVENT DATE: 20191214
